FAERS Safety Report 9803167 (Version 1)
Quarter: 2014Q1

REPORT INFORMATION
  Report Type: Spontaneous
  Country: US (occurrence: US)
  Receive Date: 20140108
  Receipt Date: 20140108
  Transmission Date: 20141002
  Serious: No
  Sender: FDA-Public Use
  Company Number: US-PFIZER INC-2014005070

PATIENT
  Age: 62 Year
  Sex: Female
  Weight: 68.03 kg

DRUGS (3)
  1. RELPAX [Suspect]
     Indication: MIGRAINE
     Dosage: 20 MG, AS NEEDED
     Route: 048
     Dates: start: 2008
  2. PROPRANOLOL [Concomitant]
     Indication: PROPHYLAXIS
     Dosage: UNK
  3. FIORINAL [Concomitant]
     Indication: HEADACHE
     Dosage: UNK

REACTIONS (2)
  - Headache [Unknown]
  - Migraine [Unknown]
